FAERS Safety Report 8239395-X (Version None)
Quarter: 2012Q1

REPORT INFORMATION
  Report Type: 
  Country: None (occurrence: None)
  Receive Date: 20120328
  Receipt Date: 20120319
  Transmission Date: 20120608
  Serious: Yes (Other)
  Sender: FDA-Public Use
  Company Number: US-BAYER-2011-111436

PATIENT
  Age: 19 Year
  Sex: Female
  Weight: 45.351 kg

DRUGS (11)
  1. CEPHALEXIN [Concomitant]
     Dosage: UNK
     Dates: start: 20090601
  2. BENZONATATE [Concomitant]
     Indication: GASTRIC DISORDER
     Dosage: UNK
     Dates: start: 20080101
  3. YASMIN [Suspect]
     Indication: PREMENSTRUAL SYNDROME
  4. NAPROXEN [Concomitant]
     Dosage: 500 MG
  5. OMEPRAZOLE [Concomitant]
     Indication: GASTRIC DISORDER
     Dosage: UNK
     Dates: start: 20080101
  6. DROSPIRENONE AND ETHINYL ESTRADIOL [Suspect]
     Indication: CONTRACEPTION
     Dosage: UNK
     Route: 048
     Dates: start: 20081001, end: 20110501
  7. SERTRALINE HYDROCHLORIDE [Concomitant]
     Indication: GASTRIC DISORDER
     Dosage: UNK
     Dates: start: 20080101
  8. DROSPIRENONE AND ETHINYL ESTRADIOL [Suspect]
     Indication: PREMENSTRUAL SYNDROME
  9. DICYCLOMINE [Concomitant]
     Indication: GASTRIC DISORDER
     Dosage: UNK
     Dates: start: 20080101
  10. ZANTAC [Concomitant]
     Indication: ABDOMINAL PAIN
     Dosage: UNK
     Dates: start: 20090624
  11. YASMIN [Suspect]
     Indication: CONTRACEPTION
     Dosage: UNK
     Route: 048
     Dates: start: 20081001, end: 20110501

REACTIONS (3)
  - PAIN [None]
  - GALLBLADDER DISORDER [None]
  - INJURY [None]
